FAERS Safety Report 7526170-4 (Version None)
Quarter: 2011Q2

REPORT INFORMATION
  Report Type: 
  Country: None (occurrence: None)
  Receive Date: 20110603
  Receipt Date: 20110603
  Transmission Date: 20111010
  Serious: Yes (Hospitalization)
  Sender: FDA-Public Use
  Company Number: None

PATIENT
  Sex: Male
  Weight: 77 kg

DRUGS (1)
  1. AMOXICILLIN [Suspect]
     Indication: TOOTH INFECTION
     Dosage: 500MG 3X DAILY PO
     Route: 048
     Dates: start: 20110517, end: 20110517

REACTIONS (3)
  - DERMATITIS BULLOUS [None]
  - BLISTER [None]
  - GENERALISED ERYTHEMA [None]
